FAERS Safety Report 10229603 (Version 1)
Quarter: 2014Q2

REPORT INFORMATION
  Report Type: Spontaneous
  Country: DE (occurrence: None)
  Receive Date: 20140609
  Receipt Date: 20140609
  Transmission Date: 20141212
  Serious: Yes (Hospitalization)
  Sender: FDA-Public Use
  Company Number: 2014DE0237

PATIENT
  Age: 70 Year
  Sex: Female

DRUGS (9)
  1. KINERET [Suspect]
     Indication: RHEUMATOID ARTHRITIS
     Dosage: 100MG (100MG, 1 IN 1D)
     Route: 058
     Dates: start: 20130527
  2. BROMAZEPAM (BROMAZEPAM) (BROMAZEPAM) [Concomitant]
  3. OMEPRAZOL (OMEPRAZOLE) (OMEPRAZOLE) [Concomitant]
  4. RANTUDIL (ACEMETACIN) (ACEMETACIN) [Concomitant]
  5. PREGABALIN (PREGABALIN) (PREGABALIN) [Concomitant]
  6. ATACAND (CANDESARTAN CILEXETIL) (CANDESARTAN CILEXETIL) [Concomitant]
  7. CLINDAMYCIN (CLINDAMYCIN) (CLINDAMYCIN) [Concomitant]
  8. PREDNISOLON (PREDNISOLONE) (PREDNISOLONE) [Concomitant]
  9. SULFASALAZIN (SULFASALAZINE) (SULFASALAZINE) [Concomitant]

REACTIONS (1)
  - Femur fracture [None]
